FAERS Safety Report 25350094 (Version 1)
Quarter: 2025Q2

REPORT INFORMATION
  Report Type: Spontaneous
  Country: US (occurrence: US)
  Receive Date: 20250523
  Receipt Date: 20250523
  Transmission Date: 20250717
  Serious: No
  Sender: ELI LILLY AND COMPANY
  Company Number: US-ELI_LILLY_AND_COMPANY-US202505011169

PATIENT
  Age: 40 Year
  Sex: Female

DRUGS (4)
  1. TALTZ [Suspect]
     Active Substance: IXEKIZUMAB
     Indication: Pharyngitis
     Route: 065
     Dates: end: 2024
  2. DUPIXENT [Suspect]
     Active Substance: DUPILUMAB
     Indication: Chronic rhinosinusitis with nasal polyps
     Route: 058
     Dates: start: 20240611
  3. DUPIXENT [Suspect]
     Active Substance: DUPILUMAB
     Route: 058
  4. DUPIXENT [Suspect]
     Active Substance: DUPILUMAB
     Route: 058
     Dates: end: 2024

REACTIONS (15)
  - Arthritis [Unknown]
  - Cough [Unknown]
  - Costochondritis [Unknown]
  - COVID-19 [Not Recovered/Not Resolved]
  - Fatigue [Unknown]
  - Sinus headache [Unknown]
  - Back pain [Unknown]
  - Headache [Unknown]
  - Wheezing [Unknown]
  - Off label use [Unknown]
  - Oropharyngeal pain [Unknown]
  - Nausea [Unknown]
  - Upper respiratory tract infection [Unknown]
  - Pharyngitis [Unknown]
  - Injection site pain [Unknown]

NARRATIVE: CASE EVENT DATE: 20240101
